FAERS Safety Report 16460120 (Version 1)
Quarter: 2019Q2

REPORT INFORMATION
  Report Type: Spontaneous
  Country: GB (occurrence: GB)
  Receive Date: 20190620
  Receipt Date: 20190620
  Transmission Date: 20190711
  Serious: Yes (Hospitalization)
  Sender: FDA-Public Use
  Company Number: GB-VERTEX PHARMACEUTICALS-2019-005703

PATIENT
  Age: 44 Year
  Sex: Female

DRUGS (7)
  1. VITAMIN D                          /00107901/ [Concomitant]
     Active Substance: ERGOCALCIFEROL
  2. VITAMIN A + E [Concomitant]
  3. VENTOLIN [Concomitant]
     Active Substance: ALBUTEROL SULFATE
  4. CREON [Concomitant]
     Active Substance: PANCRELIPASE AMYLASE\PANCRELIPASE LIPASE\PANCRELIPASE PROTEASE
  5. KALYDECO [Suspect]
     Active Substance: IVACAFTOR
     Indication: CYSTIC FIBROSIS
     Dosage: 150 MG, BID
     Route: 048
     Dates: start: 20130301
  6. FLUCLOXACILLIN [Concomitant]
     Active Substance: FLUCLOXACILLIN
  7. NOVOMIX [Concomitant]
     Active Substance: INSULIN ASPART

REACTIONS (1)
  - Hospitalisation [Unknown]

NARRATIVE: CASE EVENT DATE: 201906
